FAERS Safety Report 15227863 (Version 1)
Quarter: 2018Q3

REPORT INFORMATION
  Report Type: Spontaneous
  Country: US (occurrence: US)
  Receive Date: 20180706
  Receipt Date: 20180706
  Transmission Date: 20181010
  Serious: Yes (Disabling, Other)
  Sender: FDA-Public Use
  Company Number: None

PATIENT
  Age: 37 Year
  Sex: Female
  Weight: 51.75 kg

DRUGS (2)
  1. DOXYCYCLINE. [Suspect]
     Active Substance: DOXYCYCLINE
     Indication: HAEMOPHILUS INFECTION
     Dosage: ?          QUANTITY:2 TABLET(S);?
     Route: 048
     Dates: start: 20180606, end: 20180606
  2. TYLENOL [Concomitant]
     Active Substance: ACETAMINOPHEN

REACTIONS (20)
  - Eye movement disorder [None]
  - Nasal dryness [None]
  - Lacrimation increased [None]
  - Eye disorder [None]
  - Dizziness [None]
  - Nasal congestion [None]
  - Vision blurred [None]
  - Tongue discolouration [None]
  - Eyelid thickening [None]
  - Dry throat [None]
  - Headache [None]
  - Vomiting [None]
  - Dyspnoea [None]
  - Faeces discoloured [None]
  - Nausea [None]
  - Eye swelling [None]
  - Eye pain [None]
  - Rash [None]
  - Throat irritation [None]
  - Ocular discomfort [None]

NARRATIVE: CASE EVENT DATE: 20180606
